FAERS Safety Report 7943525-4 (Version None)
Quarter: 2011Q4

REPORT INFORMATION
  Report Type: 
  Country: None (occurrence: None)
  Receive Date: 20111128
  Receipt Date: 20111118
  Transmission Date: 20120403
  Serious: Yes (Hospitalization)
  Sender: FDA-Public Use
  Company Number: US-BAYER-2011-052592

PATIENT
  Age: 17 Year
  Sex: Female
  Weight: 90.703 kg

DRUGS (2)
  1. YASMIN [Suspect]
     Indication: CONTRACEPTION
     Dosage: UNK
     Dates: start: 20090601, end: 20100401
  2. POTASSIUM ACETATE [Concomitant]
     Dosage: UNK
     Dates: start: 20090801

REACTIONS (2)
  - CHOLELITHIASIS [None]
  - EMOTIONAL DISTRESS [None]
